FAERS Safety Report 9741039 (Version 1)
Quarter: 2013Q4

REPORT INFORMATION
  Report Type: Spontaneous
  Country: AU (occurrence: AU)
  Receive Date: 20131209
  Receipt Date: 20131209
  Transmission Date: 20140711
  Serious: Yes (Death, Other)
  Sender: FDA-Public Use
  Company Number: AU-PFIZER INC-2013351318

PATIENT
  Age: 22 Year
  Sex: Female

DRUGS (1)
  1. ZOLOFT [Suspect]
     Dosage: UNK
     Dates: start: 201311

REACTIONS (3)
  - Completed suicide [Fatal]
  - Psychotic disorder [Unknown]
  - Feeling abnormal [Unknown]
